FAERS Safety Report 15392924 (Version 1)
Quarter: 2020Q3

REPORT INFORMATION
  Report Type: Spontaneous
  Country: US (occurrence: US)
  Receive Date: 20180917
  Receipt Date: 20180917
  Transmission Date: 20201104
  Serious: Yes (Other)
  Sender: FDA-Public Use
  Company Number: US-ASTRAZENECA-2018SF16832

PATIENT
  Sex: Female
  Weight: 62.1 kg

DRUGS (2)
  1. OLAPARIB. [Suspect]
     Active Substance: OLAPARIB
     Indication: BREAST CANCER METASTATIC
     Dosage: BID
     Route: 048
     Dates: end: 20180426
  2. ADAVOSERTIB. [Suspect]
     Active Substance: ADAVOSERTIB
     Route: 048

REACTIONS (1)
  - Malignant neoplasm progression [Unknown]
